FAERS Safety Report 5683955-7 (Version None)
Quarter: 2008Q1

REPORT INFORMATION
  Report Type: 
  Country: None (occurrence: None)
  Receive Date: 20080327
  Receipt Date: 20080327
  Transmission Date: 20080703
  Serious: Yes (Other)
  Sender: FDA-Public Use
  Company Number: None

PATIENT
  Age: 65 Year
  Sex: Female
  Weight: 98.4306 kg

DRUGS (1)
  1. ADENOSINE [Suspect]
     Indication: CARDIAC DISORDER
     Dosage: FOR THE STRESS TEST
     Dates: start: 20080324, end: 20080324

REACTIONS (4)
  - EYE PAIN [None]
  - HEADACHE [None]
  - PHOTOPHOBIA [None]
  - TOOTHACHE [None]
